FAERS Safety Report 24956415 (Version 1)
Quarter: 2025Q1

REPORT INFORMATION
  Report Type: Spontaneous
  Country: US (occurrence: US)
  Receive Date: 20250211
  Receipt Date: 20250211
  Transmission Date: 20250409
  Serious: No
  Sender: PERRIGO
  Company Number: US-PERRIGO-24US009109

PATIENT

DRUGS (1)
  1. NAPROXEN SODIUM [Suspect]
     Active Substance: NAPROXEN SODIUM
     Indication: Migraine
     Route: 048

REACTIONS (3)
  - Therapeutic product effect variable [Unknown]
  - Product use in unapproved indication [Unknown]
  - Expired product administered [Unknown]
